FAERS Safety Report 12807199 (Version 1)
Quarter: 2016Q4

REPORT INFORMATION
  Report Type: Spontaneous
  Country: FR (occurrence: FR)
  Receive Date: 20161004
  Receipt Date: 20161004
  Transmission Date: 20170207
  Serious: Yes (Hospitalization)
  Sender: FDA-Public Use
  Company Number: FR-SA-2016SA181161

PATIENT
  Age: 80 Year
  Sex: Male

DRUGS (8)
  1. PAROXETINE. [Concomitant]
     Active Substance: PAROXETINE
     Route: 048
  2. EUPRESSYL [Concomitant]
     Active Substance: URAPIDIL
     Route: 048
  3. CALCIPARINE [Suspect]
     Active Substance: HEPARIN CALCIUM
     Route: 058
     Dates: start: 20160722, end: 20160726
  4. COVERAM [Concomitant]
     Active Substance: AMLODIPINE\PERINDOPRIL
     Route: 048
  5. PLAVIX [Suspect]
     Active Substance: CLOPIDOGREL BISULFATE
     Route: 048
     Dates: end: 20160726
  6. CLAFORAN [Concomitant]
     Active Substance: CEFOTAXIME SODIUM
     Dates: start: 20160714, end: 20160716
  7. OFLOXACIN. [Suspect]
     Active Substance: OFLOXACIN
     Route: 048
     Dates: start: 20160716, end: 20160726
  8. XATRAL [Suspect]
     Active Substance: ALFUZOSIN
     Route: 048
     Dates: start: 20160715, end: 20160727

REACTIONS (1)
  - Thrombocytopenia [Recovering/Resolving]

NARRATIVE: CASE EVENT DATE: 20160726
